FAERS Safety Report 23994960 (Version 1)
Quarter: 2024Q2

REPORT INFORMATION
  Report Type: Spontaneous
  Country: US (occurrence: None)
  Receive Date: 20240619
  Receipt Date: 20240619
  Transmission Date: 20240716
  Serious: Yes (Life-Threatening, Other)
  Sender: FDA-Public Use
  Company Number: None

PATIENT
  Age: 42 Year
  Sex: Female
  Weight: 138.69 kg

DRUGS (25)
  1. AMPHETAMINE SULFATE\DEXTROAMPHETAMINE [Suspect]
     Active Substance: AMPHETAMINE SULFATE\DEXTROAMPHETAMINE
     Indication: Attention deficit hyperactivity disorder
     Dosage: 30 TABLETS ORAL
     Route: 048
     Dates: start: 20240517, end: 20240613
  2. FAMOTIDINE [Concomitant]
     Active Substance: FAMOTIDINE
  3. CETIRIZINE HYDROCHLORIDE [Concomitant]
     Active Substance: CETIRIZINE HYDROCHLORIDE
  4. LORATADINE [Concomitant]
     Active Substance: LORATADINE
  5. BENADRYL [Concomitant]
     Active Substance: DIPHENHYDRAMINE HYDROCHLORIDE
  6. FLONASE [Concomitant]
     Active Substance: FLUTICASONE PROPIONATE
  7. EPIPEN [Concomitant]
     Active Substance: EPINEPHRINE
  8. inhaler (prn) [Concomitant]
  9. XOLAIR [Concomitant]
     Active Substance: OMALIZUMAB
  10. hydroxychloroquine 400mgs/bedtime (plaquenil) [Concomitant]
  11. d3-2000 [Concomitant]
  12. vitamin b complex mutlivitamin [Concomitant]
  13. METOCLOPRAMIDE [Concomitant]
     Active Substance: METOCLOPRAMIDE
  14. NURTEC ODT [Concomitant]
     Active Substance: RIMEGEPANT SULFATE
  15. SUMATRIPTAN [Concomitant]
     Active Substance: SUMATRIPTAN
  16. AIMOVIG [Concomitant]
     Active Substance: ERENUMAB-AOOE
  17. ADDERALL [Concomitant]
     Active Substance: AMPHETAMINE ASPARTATE\AMPHETAMINE SULFATE\DEXTROAMPHETAMINE SACCHARATE\DEXTROAMPHETAMINE SULFATE
  18. TRAZODONE [Concomitant]
     Active Substance: TRAZODONE HYDROCHLORIDE
  19. VOLTAREN [Concomitant]
     Active Substance: DICLOFENAC SODIUM
  20. GABAPENTIN [Concomitant]
     Active Substance: GABAPENTIN
  21. LIDOCAINE [Concomitant]
     Active Substance: LIDOCAINE
  22. TYLENOL ARTHRITIS [Concomitant]
  23. equipment-pulse02 meter automated blood pressure cuff tens unit cane w [Concomitant]
  24. VITAMIN B COMPLEX [Concomitant]
  25. VITAMINS [Concomitant]
     Active Substance: VITAMINS

REACTIONS (2)
  - Suicide attempt [None]
  - Cognitive disorder [None]

NARRATIVE: CASE EVENT DATE: 20240613
